FAERS Safety Report 15508688 (Version 1)
Quarter: 2018Q4

REPORT INFORMATION
  Report Type: Spontaneous
  Country: US (occurrence: US)
  Receive Date: 20181016
  Receipt Date: 20181016
  Transmission Date: 20190205
  Serious: No
  Sender: FDA-Public Use
  Company Number: US-AMGEN-USASP2018037418

PATIENT
  Age: 72 Year
  Sex: Male

DRUGS (2)
  1. SENSIPAR [Suspect]
     Active Substance: CINACALCET HYDROCHLORIDE
     Dosage: UNK, HALF A TABLET
     Route: 048
     Dates: start: 201802, end: 201802
  2. SENSIPAR [Suspect]
     Active Substance: CINACALCET HYDROCHLORIDE
     Indication: HYPERCALCAEMIA
     Dosage: UNK
     Route: 048
     Dates: start: 201710

REACTIONS (2)
  - Wrong technique in product usage process [Unknown]
  - Muscle twitching [Recovering/Resolving]

NARRATIVE: CASE EVENT DATE: 201802
